FAERS Safety Report 4512814-8 (Version None)
Quarter: 2004Q4

REPORT INFORMATION
  Report Type: 
  Country: None (occurrence: None)
  Receive Date: 20041130
  Receipt Date: 20041118
  Transmission Date: 20050328
  Serious: Yes (Other)
  Sender: FDA-Public Use
  Company Number: US-JNJFOC-20040802658

PATIENT
  Sex: Male
  Weight: 56.25 kg

DRUGS (12)
  1. REMICADE [Suspect]
     Route: 042
  2. REMICADE [Suspect]
     Route: 042
  3. REMICADE [Suspect]
     Route: 042
  4. REMICADE [Suspect]
     Route: 042
  5. REMICADE [Suspect]
     Route: 042
  6. REMICADE [Suspect]
     Indication: CROHN'S DISEASE
     Route: 042
  7. PENTASA [Concomitant]
     Indication: CROHN'S DISEASE
  8. BENTYL [Concomitant]
  9. GLYSET [Concomitant]
     Indication: BLOOD GLUCOSE FLUCTUATION
  10. PRIMIDONE [Concomitant]
     Indication: TREMOR
  11. PROPRANOLOL [Concomitant]
  12. LEXAPRO [Concomitant]
     Indication: ANXIETY

REACTIONS (9)
  - ASTHENIA [None]
  - BALANCE DISORDER [None]
  - BLOOD GLUCOSE DECREASED [None]
  - BLOOD GLUCOSE FLUCTUATION [None]
  - DEHYDRATION [None]
  - DIFFICULTY IN WALKING [None]
  - ESSENTIAL TREMOR [None]
  - FALL [None]
  - WEIGHT INCREASED [None]
